FAERS Safety Report 19455355 (Version 7)
Quarter: 2021Q3

REPORT INFORMATION
  Report Type: Report from Study
  Country: CA (occurrence: CA)
  Receive Date: 20210623
  Receipt Date: 20210927
  Transmission Date: 20211014
  Serious: Yes (Hospitalization, Other)
  Sender: FDA-Public Use
  Company Number: NVSC2020CA350079

PATIENT
  Age: 51 Year
  Sex: Male

DRUGS (14)
  1. RIXIMYO [Suspect]
     Active Substance: RITUXIMAB
     Dosage: 1000 MG (VIAL)
     Route: 042
  2. RIXIMYO [Suspect]
     Active Substance: RITUXIMAB
     Dosage: 500 MG, QWX 2 WEEKS
     Route: 042
  3. BENADRYL [Concomitant]
     Active Substance: DIPHENHYDRAMINE HYDROCHLORIDE
     Indication: PRODUCT USED FOR UNKNOWN INDICATION
     Dosage: 25 MG
     Route: 042
  4. RIXIMYO [Suspect]
     Active Substance: RITUXIMAB
     Dosage: 1000 MG, 375 MG/M2
     Route: 042
     Dates: start: 20210810
  5. RIXIMYO [Suspect]
     Active Substance: RITUXIMAB
     Dosage: 1000 MG
     Route: 042
  6. RIXIMYO [Suspect]
     Active Substance: RITUXIMAB
     Dosage: UNK (DOSE: 1/2 DOSE OF 375 MG/M2)
     Route: 042
     Dates: start: 20210830
  7. DIPHENHYDRAMINE HCL [Concomitant]
     Active Substance: DIPHENHYDRAMINE HYDROCHLORIDE
     Indication: PRODUCT USED FOR UNKNOWN INDICATION
     Dosage: 50 MG
     Route: 048
  8. RIXIMYO [Suspect]
     Active Substance: RITUXIMAB
     Dosage: 375 MG/M2 (1000 MG) 2 INFUSION
     Route: 042
     Dates: start: 20210703, end: 20210726
  9. RIXIMYO [Suspect]
     Active Substance: RITUXIMAB
     Indication: IMMUNE THROMBOCYTOPENIA
     Dosage: UNK
     Route: 065
  10. METHYLPREDNISOLONE. [Concomitant]
     Active Substance: METHYLPREDNISOLONE
     Indication: PRODUCT USED FOR UNKNOWN INDICATION
     Dosage: 100 MG
     Route: 042
  11. RIXIMYO [Suspect]
     Active Substance: RITUXIMAB
     Dosage: 375 MG
     Route: 065
  12. ACETAMINOPHEN. [Concomitant]
     Active Substance: ACETAMINOPHEN
     Indication: PRODUCT USED FOR UNKNOWN INDICATION
     Dosage: 650 MG
     Route: 048
  13. RIXIMYO [Suspect]
     Active Substance: RITUXIMAB
     Dosage: 500 MG,FOR DOSE 3 AND 1 WEEK LATER WITH PREMEDICATION
     Route: 042
  14. ELTROMBOPAG [Suspect]
     Active Substance: ELTROMBOPAG
     Indication: PRODUCT USED FOR UNKNOWN INDICATION
     Dosage: 75 MG, QD (HAD BEEN ON IT FOR MORE THAN 1 YR AGO)
     Route: 065

REACTIONS (10)
  - Drug hypersensitivity [Recovered/Resolved]
  - Drug dependence [Unknown]
  - Platelet count abnormal [Unknown]
  - Product use in unapproved indication [Unknown]
  - Dyspnoea [Unknown]
  - Feeling abnormal [Unknown]
  - Platelet disorder [Unknown]
  - Pruritus [Unknown]
  - Rash [Unknown]
  - Serum sickness [Unknown]

NARRATIVE: CASE EVENT DATE: 20210617
